FAERS Safety Report 9595225 (Version 1)
Quarter: 2013Q4

REPORT INFORMATION
  Report Type: Spontaneous
  Country: US (occurrence: US)
  Receive Date: 20131004
  Receipt Date: 20131004
  Transmission Date: 20140711
  Serious: Yes (Other)
  Sender: FDA-Public Use
  Company Number: US-NAPPMUNDI-USA-2012-0093589

PATIENT
  Age: 46 Year
  Sex: Female

DRUGS (2)
  1. BUTRANS [Suspect]
     Indication: DRUG ABUSE
     Dosage: 10 MCG/HR, UNK
     Route: 042
  2. MS CONTIN TABLETS [Suspect]
     Indication: PRODUCT USED FOR UNKNOWN INDICATION

REACTIONS (2)
  - Drug abuse [Unknown]
  - Drug withdrawal syndrome [Unknown]
